FAERS Safety Report 8001375-7 (Version None)
Quarter: 2011Q4

REPORT INFORMATION
  Report Type: 
  Country: None (occurrence: None)
  Receive Date: 20111222
  Receipt Date: 20111220
  Transmission Date: 20120403
  Serious: Yes (Hospitalization)
  Sender: FDA-Public Use
  Company Number: SE-PFIZER INC-2011308325

PATIENT
  Age: 61 Year
  Sex: Male

DRUGS (12)
  1. OMEPRAZOLE [Concomitant]
     Dosage: UNK
  2. NITROMEX [Concomitant]
     Dosage: 0.25 MG, UNK
  3. MORPHINE SULFATE [Suspect]
     Indication: BLADDER CANCER
     Dosage: UNK
     Route: 048
     Dates: start: 20110204, end: 20111116
  4. METOPROLOL [Concomitant]
     Dosage: UNK
  5. NIFEREX [Concomitant]
     Dosage: UNK
  6. ENALAPRIL [Concomitant]
     Dosage: UNK
  7. ALVEDON [Concomitant]
     Dosage: 500 MG, UNK
  8. PREDNISOLONE [Concomitant]
     Dosage: UNK
  9. LAXOBERAL [Concomitant]
     Dosage: UNK
  10. LACTULOSE [Concomitant]
     Dosage: UNK
  11. ASPIRIN [Concomitant]
     Dosage: 75 MG, UNK
  12. MORPHINE [Suspect]
     Indication: BLADDER CANCER
     Dosage: 10 MG, AS NEEDED
     Route: 048
     Dates: start: 20110205, end: 20111116

REACTIONS (2)
  - HYPERAESTHESIA [None]
  - MYOCLONUS [None]
